FAERS Safety Report 9106604 (Version 1)
Quarter: 2013Q1

REPORT INFORMATION
  Report Type: Spontaneous
  Country: US (occurrence: US)
  Receive Date: 20130221
  Receipt Date: 20130221
  Transmission Date: 20140127
  Serious: Yes (Other)
  Sender: FDA-Public Use
  Company Number: US-BANPHARM-20130683

PATIENT
  Age: 79 Year
  Sex: Female
  Weight: 54.43 kg

DRUGS (4)
  1. ALEVE LIQUID GELS 220 MG [Suspect]
     Indication: PAIN
     Dosage: 2 DF, QD,
     Route: 048
     Dates: start: 2012
  2. BETA BLOCKER [Concomitant]
  3. THYROID MEDICATION [Concomitant]
  4. IBS MEDICATIONS [Concomitant]

REACTIONS (4)
  - Rash [Unknown]
  - Haemorrhagic diathesis [Unknown]
  - Contusion [Unknown]
  - Incorrect drug administration duration [Not Recovered/Not Resolved]
